FAERS Safety Report 17628980 (Version 4)
Quarter: 2020Q2

REPORT INFORMATION
  Report Type: Spontaneous
  Country: US (occurrence: US)
  Receive Date: 20200406
  Receipt Date: 20200603
  Transmission Date: 20200713
  Serious: No
  Sender: FDA-Public Use
  Company Number: US-SHIRE-US202012547

PATIENT
  Age: 28 Year
  Sex: Male

DRUGS (1)
  1. TAKHZYRO [Suspect]
     Active Substance: LANADELUMAB-FLYO
     Indication: PRODUCT USED FOR UNKNOWN INDICATION
     Dosage: 300 MILLILITER, 1X/2WKS
     Route: 065
     Dates: start: 20190510

REACTIONS (4)
  - Product storage error [Unknown]
  - Influenza [Unknown]
  - Poor quality product administered [Unknown]
  - Product dose omission [Unknown]

NARRATIVE: CASE EVENT DATE: 20200406
